FAERS Safety Report 5919441-6 (Version None)
Quarter: 2008Q4

REPORT INFORMATION
  Report Type: 
  Country: None (occurrence: None)
  Receive Date: 20081015
  Receipt Date: 20081009
  Transmission Date: 20090506
  Serious: Yes (Death, Other)
  Sender: FDA-Public Use
  Company Number: PHBS2008GB05971

PATIENT
  Age: 37 Year
  Sex: Female

DRUGS (3)
  1. CYCLOSPORINE [Suspect]
     Indication: APLASTIC ANAEMIA
  2. ANTI-THYMOCYTE GLOBULIN NOS [Concomitant]
     Indication: APLASTIC ANAEMIA
  3. NEUPOGEN [Concomitant]

REACTIONS (7)
  - APLASTIC ANAEMIA [None]
  - BLOOD IMMUNOGLOBULIN G INCREASED [None]
  - BRONCHIECTASIS [None]
  - BRONCHOPULMONARY ASPERGILLOSIS [None]
  - CHEST X-RAY ABNORMAL [None]
  - COUGH [None]
  - PSEUDOMONAS INFECTION [None]
